FAERS Safety Report 8462105-8 (Version None)
Quarter: 2012Q2

REPORT INFORMATION
  Report Type: 
  Country: None (occurrence: None)
  Receive Date: 20120625
  Receipt Date: 20120614
  Transmission Date: 20120825
  Serious: Yes (Other)
  Sender: FDA-Public Use
  Company Number: US-JNJFOC-20120517661

PATIENT
  Sex: Female

DRUGS (13)
  1. REMICADE [Suspect]
     Dosage: 3 EVERY 6 WEEKS
     Route: 042
  2. OSCAL NOS [Concomitant]
     Indication: OSTEOPENIA
     Route: 065
     Dates: start: 19890101
  3. PRILOSEC [Concomitant]
     Indication: GASTROOESOPHAGEAL REFLUX DISEASE
     Dosage: IN 1990'S
     Route: 065
  4. FOLIC ACID [Concomitant]
     Indication: RHEUMATOID ARTHRITIS
     Dosage: IN 1990'S
     Route: 065
  5. REMICADE [Suspect]
     Dosage: 5 EVERY 6 WEEKS
     Route: 042
  6. METHOTREXATE [Concomitant]
     Indication: RHEUMATOID ARTHRITIS
     Dosage: STARTED POSSIBLY IN 1990
     Route: 065
  7. MELOXICAM [Concomitant]
     Indication: RHEUMATOID ARTHRITIS
     Route: 065
  8. LOSARTAN POTASSIUM [Concomitant]
     Indication: HYPERTENSION
     Dosage: STARTED POSSIBLY IN 2010/2011
     Route: 065
  9. ALBUTEROL [Concomitant]
     Indication: CHRONIC OBSTRUCTIVE PULMONARY DISEASE
     Route: 055
     Dates: end: 20010101
  10. REMICADE [Suspect]
     Indication: RHEUMATOID ARTHRITIS
     Route: 042
     Dates: start: 20110101
  11. REMICADE [Suspect]
     Route: 042
  12. REMICADE [Suspect]
     Dosage: 3 EVERY 8 WEEKS
     Route: 042
  13. SPIRIVA [Concomitant]
     Indication: CHRONIC OBSTRUCTIVE PULMONARY DISEASE
     Route: 055
     Dates: end: 20010101

REACTIONS (6)
  - PNEUMONIA [None]
  - NODULE [None]
  - CONDITION AGGRAVATED [None]
  - RHEUMATOID NODULE [None]
  - BRONCHITIS [None]
  - LUNG INFECTION [None]
